FAERS Safety Report 23753834 (Version 1)
Quarter: 2024Q2

REPORT INFORMATION
  Report Type: Spontaneous
  Country: US (occurrence: US)
  Receive Date: 20240417
  Receipt Date: 20240417
  Transmission Date: 20240715
  Serious: No
  Sender: FDA-Public Use
  Company Number: US-BAUSCHBL-2024BNL025452

PATIENT
  Sex: Female

DRUGS (1)
  1. XIIDRA [Suspect]
     Active Substance: LIFITEGRAST
     Indication: Sjogren^s syndrome
     Route: 047

REACTIONS (2)
  - Eye irritation [Unknown]
  - Vision blurred [Unknown]
